FAERS Safety Report 19469731 (Version 1)
Quarter: 2021Q2

REPORT INFORMATION
  Report Type: Spontaneous
  Country: US (occurrence: US)
  Receive Date: 20210628
  Receipt Date: 20210628
  Transmission Date: 20210717
  Serious: No
  Sender: FDA-Public Use
  Company Number: US-ANIPHARMA-2020-US-016895

PATIENT
  Sex: Female

DRUGS (1)
  1. OXYCODONE [OXYCODONE HYDROCHLORIDE] [Suspect]
     Active Substance: OXYCODONE HYDROCHLORIDE
     Indication: ANALGESIC THERAPY
     Route: 048
     Dates: start: 20200817

REACTIONS (3)
  - Unevaluable event [Unknown]
  - Product use complaint [Unknown]
  - Choking [Unknown]

NARRATIVE: CASE EVENT DATE: 20200817
